FAERS Safety Report 13365807 (Version 1)
Quarter: 2017Q1

REPORT INFORMATION
  Report Type: Spontaneous
  Country: US (occurrence: US)
  Receive Date: 20170323
  Receipt Date: 20170323
  Transmission Date: 20170429
  Serious: Yes (Other)
  Sender: FDA-Public Use
  Company Number: US-WARNER CHILCOTT-2016-002351

PATIENT
  Sex: Female

DRUGS (1)
  1. ESTRACE [Suspect]
     Active Substance: ESTRADIOL
     Dosage: 1 APPLICATOR APPLIED 3 TIMES WEEKLY
     Route: 067

REACTIONS (7)
  - Vaginal cyst [Not Recovered/Not Resolved]
  - Genital pain [Not Recovered/Not Resolved]
  - Cystitis [Recovered/Resolved]
  - Vaginal infection [Recovered/Resolved]
  - Kidney infection [Recovered/Resolved]
  - Application site discharge [Unknown]
  - Vulvovaginal mycotic infection [Recovered/Resolved]

NARRATIVE: CASE EVENT DATE: 201609
